FAERS Safety Report 4845606-0 (Version None)
Quarter: 2005Q4

REPORT INFORMATION
  Report Type: 
  Country: None (occurrence: None)
  Receive Date: 20051201
  Receipt Date: 20051118
  Transmission Date: 20060501
  Serious: Yes (Hospitalization, Other)
  Sender: FDA-Public Use
  Company Number: 2005PV004605

PATIENT
  Age: 60 Year
  Sex: Female
  Weight: 76.6579 kg

DRUGS (3)
  1. BYETTA [Suspect]
     Indication: DIABETES MELLITUS NON-INSULIN-DEPENDENT
     Dosage: 5 MCG;BID;SC
     Route: 058
     Dates: start: 20051101, end: 20051114
  2. METFORMIN [Concomitant]
  3. LANTUS [Concomitant]

REACTIONS (10)
  - BLOOD GLUCOSE INCREASED [None]
  - COUGH [None]
  - DIARRHOEA [None]
  - FATIGUE [None]
  - MALAISE [None]
  - NAUSEA [None]
  - RENAL FAILURE [None]
  - RENAL TUBULAR NECROSIS [None]
  - RESPIRATORY TRACT CONGESTION [None]
  - VOMITING [None]
